FAERS Safety Report 9617229 (Version 3)
Quarter: 2015Q3

REPORT INFORMATION
  Report Type: Report from Study
  Country: JP (occurrence: JP)
  Receive Date: 20131011
  Receipt Date: 20150702
  Transmission Date: 20151125
  Serious: Yes (Hospitalization)
  Sender: FDA-Public Use
  Company Number: JP-SA-2013SA099983

PATIENT
  Sex: Female
  Weight: 22.9 kg

DRUGS (37)
  1. ACICLOVIR [Concomitant]
     Active Substance: ACYCLOVIR
     Indication: ANTIVIRAL PROPHYLAXIS
     Dates: start: 20130921, end: 20131031
  2. AZUNOL [Concomitant]
     Active Substance: SODIUM GUALENATE
     Indication: GRAFT VERSUS HOST DISEASE
     Dates: start: 20131015, end: 20131121
  3. THYMOGLOBULIN [Suspect]
     Active Substance: LAPINE T-LYMPHOCYTE IMMUNE GLOBULIN
     Indication: STEM CELL TRANSPLANT
     Route: 042
     Dates: start: 20130921, end: 20130921
  4. GLUCOSE [Concomitant]
     Active Substance: DEXTROSE
     Dosage: FOR DISSOLUTION OF DRUG
     Dates: start: 20130921, end: 20131031
  5. FUROSEMIDE. [Concomitant]
     Active Substance: FUROSEMIDE
     Indication: PROPHYLAXIS
     Dates: start: 20131012, end: 20131012
  6. PROGRAF [Concomitant]
     Active Substance: TACROLIMUS\TACROLIMUS ANHYDROUS
     Indication: GRAFT VERSUS HOST DISEASE
     Dates: start: 20130925, end: 20131201
  7. POLARAMINE [Concomitant]
     Active Substance: DEXCHLORPHENIRAMINE MALEATE
     Indication: ALLERGY PROPHYLAXIS
     Dosage: ALLERGY PROPHYLAXIS
     Dates: start: 20130926, end: 20130926
  8. NEOPHAGEN [Concomitant]
     Active Substance: GLYCYRRHIZIN
     Indication: LIVER DISORDER
     Dates: start: 20131004, end: 20131022
  9. ISOZOL [Concomitant]
     Active Substance: THIAMYLAL SODIUM
     Dosage: FOR EXAMINATION
     Dates: start: 20131013, end: 20131013
  10. SOLU-CORTEF [Concomitant]
     Active Substance: HYDROCORTISONE SODIUM SUCCINATE
     Indication: ANAPHYLACTIC REACTION
     Dates: start: 20130921, end: 20130921
  11. FUROSEMIDE. [Concomitant]
     Active Substance: FUROSEMIDE
     Indication: PROPHYLAXIS
     Dates: start: 20130926, end: 20130926
  12. POLARAMINE [Concomitant]
     Active Substance: DEXCHLORPHENIRAMINE MALEATE
     Indication: ALLERGY PROPHYLAXIS
     Dosage: FOR GVHD
     Dates: start: 20131016, end: 20131016
  13. HARTMANN [Concomitant]
     Active Substance: CALCIUM CHLORIDE\POTASSIUM CHLORIDE\SODIUM CHLORIDE\SODIUM LACTATE
     Indication: FEEDING DISORDER
     Dates: start: 20131006, end: 20131020
  14. DERTOPICA [Concomitant]
     Indication: GRAFT VERSUS HOST DISEASE
     Dates: start: 20131015, end: 20131015
  15. EURAX [Concomitant]
     Active Substance: CROTAMITON
     Indication: GRAFT VERSUS HOST DISEASE
     Dates: start: 20131014, end: 20131014
  16. DALTEPARIN [Concomitant]
     Active Substance: DALTEPARIN
     Indication: PROPHYLAXIS
     Dates: start: 20130921, end: 20131031
  17. SODIUM CHLORIDE. [Concomitant]
     Active Substance: SODIUM CHLORIDE
     Dosage: FOR DISSOLUTION OF DRUG
     Dates: start: 20130921, end: 20131217
  18. ROPION [Concomitant]
     Active Substance: FLURBIPROFEN AXETIL
     Indication: PAIN
     Dates: start: 20130922, end: 20130922
  19. FUROSEMIDE. [Concomitant]
     Active Substance: FUROSEMIDE
     Indication: PROPHYLAXIS
     Dates: start: 20130922, end: 20130922
  20. POLARAMINE [Concomitant]
     Active Substance: DEXCHLORPHENIRAMINE MALEATE
     Indication: GRAFT VERSUS HOST DISEASE
     Dosage: FOR GVHD
     Dates: start: 20131016, end: 20131016
  21. SULFAMETHOXAZOLE AND TRIMETHOPRIM [Concomitant]
     Active Substance: SULFAMETHOXAZOLE\TRIMETHOPRIM
     Indication: ANTIFUNGAL PROPHYLAXIS
     Dates: start: 20130928, end: 20140328
  22. NEUTROGIN [Concomitant]
     Active Substance: LENOGRASTIM
     Dosage: FOR HEMATOPOIETIC CELL PROMOTION AFTER HSCT
     Dates: start: 20131003, end: 20131019
  23. FUNGUARD [Concomitant]
     Active Substance: MICAFUNGIN SODIUM
     Indication: ANTIFUNGAL PROPHYLAXIS
     Dates: start: 20130921, end: 20131202
  24. BFLUID [Concomitant]
     Active Substance: AMINO ACIDS\DEXTROSE\ELECTROLYTES NOS\VITAMINS
     Indication: FEEDING DISORDER
     Dates: start: 20130925, end: 20130927
  25. NICARDIPINE [Concomitant]
     Active Substance: NICARDIPINE
     Indication: HYPERTENSION
     Dates: start: 20130927, end: 20131002
  26. POLYMYXIN B SULFATE. [Concomitant]
     Active Substance: POLYMYXIN B SULFATE
     Indication: PROPHYLACTIC CHEMOTHERAPY
     Dates: start: 20130928, end: 20131002
  27. MIYA-BM [Concomitant]
     Active Substance: CLOSTRIDIUM BUTYRICUM SPORES STRAIN M-55
     Indication: PROPHYLACTIC CHEMOTHERAPY
     Dosage: MIYA-BM FINE GRANULE
     Dates: start: 20130928, end: 20131002
  28. MEROPEN [Concomitant]
     Active Substance: MEROPENEM
     Indication: FUNGAL INFECTION
     Dates: start: 20131006, end: 20131013
  29. ATARAX-P [Concomitant]
     Active Substance: HYDROXYZINE HYDROCHLORIDE
     Indication: ANAPHYLACTIC REACTION
     Dates: start: 20130921, end: 20130921
  30. CEFEPIME [Concomitant]
     Active Substance: CEFEPIME HYDROCHLORIDE
     Indication: FUNGAL INFECTION
     Dates: start: 20130925, end: 20131005
  31. POLARAMINE [Concomitant]
     Active Substance: DEXCHLORPHENIRAMINE MALEATE
     Indication: GRAFT VERSUS HOST DISEASE
     Dosage: ALLERGY PROPHYLAXIS
     Dates: start: 20130926, end: 20130926
  32. ZETBULIN [Suspect]
     Active Substance: EQUINE THYMOCYTE IMMUNE GLOBULIN
     Indication: GRAFT VERSUS HOST DISEASE
     Route: 065
     Dates: start: 20130925, end: 20130925
  33. HEPARIN SODIUM. [Concomitant]
     Active Substance: HEPARIN SODIUM
     Indication: PROPHYLAXIS
     Dosage: (INHIBITION OF COAGULATION IN THE CATHETER)
     Dates: start: 20130921, end: 20131224
  34. SOLU-CORTEF [Concomitant]
     Active Substance: HYDROCORTISONE SODIUM SUCCINATE
     Indication: ANAPHYLACTIC REACTION
     Dates: start: 20130925, end: 20130925
  35. ROPION [Concomitant]
     Active Substance: FLURBIPROFEN AXETIL
     Indication: PAIN
     Dates: start: 20130927, end: 20130927
  36. ELECTROLYTE SOLUTIONS [Concomitant]
     Active Substance: UNSPECIFIED INGREDIENT
     Indication: FEEDING DISORDER
     Dates: start: 20130928, end: 20131005
  37. VANCOMYCIN HYDROCHLORIDE. [Concomitant]
     Active Substance: VANCOMYCIN HYDROCHLORIDE
     Indication: PROPHYLACTIC CHEMOTHERAPY
     Dates: start: 20130928, end: 20131002

REACTIONS (12)
  - White blood cell count decreased [Recovered/Resolved]
  - Hypertension [Recovering/Resolving]
  - Pyrexia [Recovering/Resolving]
  - Pyrexia [Recovering/Resolving]
  - Aspartate aminotransferase increased [Recovering/Resolving]
  - Rash maculo-papular [Recovering/Resolving]
  - Urticaria [Recovering/Resolving]
  - Alanine aminotransferase increased [Recovering/Resolving]
  - Platelet count decreased [Recovered/Resolved]
  - Diarrhoea [Recovering/Resolving]
  - Anaphylactic shock [Recovered/Resolved]
  - Anaemia [Recovered/Resolved]

NARRATIVE: CASE EVENT DATE: 20130921
